FAERS Safety Report 7496174-9 (Version None)
Quarter: 2011Q2

REPORT INFORMATION
  Report Type: 
  Country: None (occurrence: None)
  Receive Date: 20110523
  Receipt Date: 20110510
  Transmission Date: 20111010
  Serious: Yes (Other)
  Sender: FDA-Public Use
  Company Number: PHHY2011CA18325

PATIENT
  Sex: Female

DRUGS (8)
  1. VITAMIN D [Concomitant]
  2. DILTIAZEM [Concomitant]
  3. ASPIRIN [Concomitant]
  4. ADVIL LIQUI-GELS [Concomitant]
  5. COUMADIN [Concomitant]
  6. ACLASTA [Suspect]
     Indication: OSTEOPOROSIS
     Dosage: UNK
     Route: 042
     Dates: start: 20110224
  7. METOPROLOL SUCCINATE [Concomitant]
  8. LIPITOR [Concomitant]

REACTIONS (7)
  - HYPERSOMNIA [None]
  - DECREASED APPETITE [None]
  - DECREASED ACTIVITY [None]
  - BONE PAIN [None]
  - MALAISE [None]
  - DIZZINESS [None]
  - NAUSEA [None]
